FAERS Safety Report 19992421 (Version 4)
Quarter: 2022Q3

REPORT INFORMATION
  Report Type: Report from Study
  Country: US (occurrence: US)
  Receive Date: 20211025
  Receipt Date: 20220823
  Transmission Date: 20221027
  Serious: Yes (Other)
  Sender: FDA-Public Use
  Company Number: US-TAKEDA-2021TUS064449

PATIENT
  Age: 59 Year
  Sex: Male
  Weight: 231 kg

DRUGS (12)
  1. HUMAN IMMUNOGLOBULIN G [Suspect]
     Active Substance: HUMAN IMMUNOGLOBULIN G
     Indication: Hypogammaglobulinaemia
     Dosage: 35 GRAM, Q4WEEKS
     Route: 042
     Dates: start: 20201006
  2. HUMAN IMMUNOGLOBULIN G [Suspect]
     Active Substance: HUMAN IMMUNOGLOBULIN G
     Indication: Non-Hodgkin^s lymphoma
  3. REVLIMID [Concomitant]
     Active Substance: LENALIDOMIDE
  4. LEVOTHYROXINE SODIUM [Concomitant]
     Active Substance: LEVOTHYROXINE SODIUM
  5. POTASSIUM BROMIDE [Concomitant]
     Active Substance: POTASSIUM BROMIDE
  6. SILDENAFIL CITRATE [Concomitant]
     Active Substance: SILDENAFIL CITRATE
  7. ASPIRIN [Concomitant]
     Active Substance: ASPIRIN
  8. PROBIOTICS NOS [Concomitant]
     Active Substance: PROBIOTICS NOS
  9. METOPROLOL SUCCINATE [Concomitant]
     Active Substance: METOPROLOL SUCCINATE
  10. GAZYVA [Concomitant]
     Active Substance: OBINUTUZUMAB
  11. FINASTERIDE [Concomitant]
     Active Substance: FINASTERIDE
  12. ALFUZOSIN [Concomitant]
     Active Substance: ALFUZOSIN

REACTIONS (12)
  - Neuropathy peripheral [Unknown]
  - Pain [Unknown]
  - Speech disorder [Unknown]
  - Flatulence [Unknown]
  - Muscle spasms [Unknown]
  - Bladder dilatation [Unknown]
  - Abdominal distension [Unknown]
  - Thyroid disorder [Unknown]
  - Bladder discomfort [Unknown]
  - Prostatic disorder [Unknown]
  - Product dose omission issue [Unknown]
  - Fatigue [Unknown]

NARRATIVE: CASE EVENT DATE: 20211001
